FAERS Safety Report 7066863-9 (Version None)
Quarter: 2010Q4

REPORT INFORMATION
  Report Type: 
  Country: None (occurrence: None)
  Receive Date: 20101027
  Receipt Date: 20100924
  Transmission Date: 20110411
  Serious: No
  Sender: FDA-Public Use
  Company Number: US-WYE-H17770510

PATIENT
  Sex: Female
  Weight: 83.99 kg

DRUGS (5)
  1. PREMPRO [Suspect]
     Indication: MENOPAUSAL SYMPTOMS
     Dosage: 0.625/5 MG DAILY
     Route: 048
     Dates: start: 20100101
  2. VITAMINS [Concomitant]
  3. ARMOUR THYROID [Concomitant]
  4. SULINDAC [Concomitant]
  5. METHOTREXATE [Concomitant]

REACTIONS (2)
  - MENORRHAGIA [None]
  - RASH [None]
